FAERS Safety Report 5941468-9 (Version None)
Quarter: 2008Q4

REPORT INFORMATION
  Report Type: 
  Country: None (occurrence: None)
  Receive Date: 20081103
  Receipt Date: 20081103
  Transmission Date: 20090506
  Serious: No
  Sender: FDA-Public Use
  Company Number: None

PATIENT
  Age: 56 Year
  Sex: Female

DRUGS (1)
  1. ESTRADIOL AND NORETHINDRONE ACETATE [Suspect]
     Indication: MENOPAUSAL SYMPTOMS
     Dosage: 1.0MG/0.5MG DAILY ORALLY, FIRST USE
     Route: 048

REACTIONS (4)
  - DEPRESSION [None]
  - EMOTIONAL DISORDER [None]
  - HOT FLUSH [None]
  - PRODUCT QUALITY ISSUE [None]
